FAERS Safety Report 4523705-0 (Version None)
Quarter: 2004Q4

REPORT INFORMATION
  Report Type: 
  Country: None (occurrence: None)
  Receive Date: 20041210
  Receipt Date: 20041202
  Transmission Date: 20050328
  Serious: Yes (Life-Threatening)
  Sender: FDA-Public Use
  Company Number: GB-GLAXOSMITHKLINE-B0359028A

PATIENT
  Age: 59 Year
  Sex: Female

DRUGS (21)
  1. AUGMENTIN '125' [Suspect]
     Indication: PNEUMONIA
     Dosage: 1.2G SINGLE DOSE
     Route: 042
     Dates: start: 20041119, end: 20041119
  2. DILTIAZEM [Concomitant]
     Dosage: 120MG TWICE PER DAY
     Route: 048
  3. NICORANDIL [Concomitant]
     Dosage: 20MG TWICE PER DAY
     Route: 048
  4. CLOPIDOGREL [Concomitant]
     Dosage: 75MG PER DAY
     Route: 048
  5. LANSOPRAZOLE [Concomitant]
     Dosage: 30MG PER DAY
     Route: 048
  6. ZOPICLONE [Concomitant]
     Dosage: 7.5MG PER DAY
     Route: 048
  7. ATORVASTATIN [Concomitant]
     Dosage: 10MG PER DAY
     Route: 048
  8. PARACETAMOL [Concomitant]
     Dosage: 1G FOUR TIMES PER DAY
     Route: 048
  9. DICLOFENAC [Concomitant]
     Dosage: 50MG THREE TIMES PER DAY
     Route: 048
     Dates: start: 20041112, end: 20041113
  10. ENOXAPARIN [Concomitant]
     Dosage: 20MG PER DAY
     Route: 058
     Dates: start: 20041112
  11. MOVICOL [Concomitant]
     Dosage: 1UNIT TWICE PER DAY
     Route: 048
     Dates: start: 20041115
  12. LACTULOSE [Concomitant]
     Dosage: 10ML TWICE PER DAY
     Route: 048
     Dates: start: 20041116
  13. GTN [Concomitant]
     Dosage: 2MG AS REQUIRED
     Route: 048
     Dates: start: 20041117, end: 20041120
  14. SENNA [Concomitant]
     Route: 048
     Dates: start: 20041113, end: 20041116
  15. ONDANSETRON [Concomitant]
     Dosage: 4MG THREE TIMES PER DAY
     Route: 048
     Dates: start: 20041112
  16. MORPHINE [Concomitant]
     Dosage: 10MG PER DAY
     Route: 030
     Dates: start: 20041112
  17. METOCLOPRAMIDE [Concomitant]
     Route: 065
  18. BUSCOPAN [Concomitant]
     Route: 065
  19. TRAMADOL HCL [Concomitant]
     Route: 065
  20. NIFEDIPINE [Concomitant]
     Route: 065
  21. ENSURE PLUS [Concomitant]
     Dosage: 1UNIT TWICE PER DAY
     Route: 048
     Dates: start: 20041116

REACTIONS (4)
  - BURNING SENSATION [None]
  - DYSPNOEA [None]
  - NECK PAIN [None]
  - WHEEZING [None]
